FAERS Safety Report 5075262-0 (Version None)
Quarter: 2006Q3

REPORT INFORMATION
  Report Type: 
  Country: None (occurrence: None)
  Receive Date: 20060809
  Receipt Date: 20051108
  Transmission Date: 20061208
  Serious: No
  Sender: FDA-Public Use
  Company Number: US-AMGEN-US157122

PATIENT
  Sex: Female
  Weight: 96.5 kg

DRUGS (18)
  1. EPOGEN [Suspect]
     Indication: DIALYSIS
     Route: 042
     Dates: start: 20020401, end: 20051105
  2. INTERFERON [Suspect]
     Route: 058
     Dates: start: 20050916, end: 20051101
  3. CYMBALTA [Suspect]
     Dates: start: 20050916
  4. SODIUM BICARBONATE [Concomitant]
     Route: 048
  5. CLONAZEPAM [Concomitant]
     Route: 048
  6. PLAVIX [Concomitant]
  7. NEURONTIN [Concomitant]
  8. LANTUS [Concomitant]
  9. PREVACID [Concomitant]
  10. PRANDIN [Concomitant]
  11. ZOLOFT [Concomitant]
  12. RENAGEL [Concomitant]
  13. DIOVAN [Concomitant]
  14. INSULIN [Concomitant]
  15. LORAZEPAM [Concomitant]
  16. HECTORAL [Concomitant]
  17. CLONIDINE [Concomitant]
  18. LUNESTA [Concomitant]

REACTIONS (1)
  - ANAEMIA [None]
